FAERS Safety Report 9657142 (Version 2)
Quarter: 2013Q4

REPORT INFORMATION
  Report Type: Report from Study
  Country: US (occurrence: US)
  Receive Date: 20131030
  Receipt Date: 20131113
  Transmission Date: 20140711
  Serious: Yes (Hospitalization)
  Sender: FDA-Public Use
  Company Number: US-JNJFOC-20131014052

PATIENT
  Age: 81 Year
  Sex: Female
  Weight: 59.42 kg

DRUGS (8)
  1. REMICADE [Suspect]
     Indication: RHEUMATOID ARTHRITIS
     Route: 042
     Dates: start: 2005
  2. ACETAMINOPHEN [Suspect]
     Indication: ARTHRITIS
     Route: 065
  3. WARFARIN [Concomitant]
     Indication: CARDIAC DISORDER
     Route: 048
     Dates: start: 201310
  4. WARFARIN [Concomitant]
     Indication: CARDIAC DISORDER
     Route: 048
     Dates: start: 2012, end: 201310
  5. FOLIC ACID [Concomitant]
     Indication: ARTHRITIS
     Route: 048
     Dates: start: 2005
  6. METHOTREXATE [Concomitant]
     Indication: ARTHRITIS
     Route: 048
  7. CALCIUM [Concomitant]
     Indication: VITAMIN SUPPLEMENTATION
     Route: 048
  8. POTASSIUM CHLORIDE [Concomitant]
     Indication: ELECTROLYTE SUBSTITUTION THERAPY
     Route: 048

REACTIONS (4)
  - Cardiac failure congestive [Recovering/Resolving]
  - Atrial fibrillation [Recovering/Resolving]
  - Arthralgia [Recovering/Resolving]
  - Bone pain [Recovering/Resolving]
